FAERS Safety Report 8056774-4 (Version None)
Quarter: 2012Q1

REPORT INFORMATION
  Report Type: 
  Country: None (occurrence: None)
  Receive Date: 20120119
  Receipt Date: 20120117
  Transmission Date: 20120608
  Serious: Yes (Hospitalization)
  Sender: FDA-Public Use
  Company Number: US-GLAXOSMITHKLINE-A0915712A

PATIENT
  Age: 75 Year
  Sex: Male
  Weight: 145.5 kg

DRUGS (7)
  1. LIPITOR [Concomitant]
  2. GEMZAR [Concomitant]
  3. VIOXX [Concomitant]
  4. AVANDIA [Suspect]
     Indication: DIABETES MELLITUS
     Dosage: 4MG PER DAY
     Route: 048
     Dates: start: 20030101, end: 20061101
  5. LEVOXYL [Concomitant]
  6. ACIPHEX [Concomitant]
  7. ZYRTEC [Concomitant]

REACTIONS (5)
  - CARDIAC ASSISTANCE DEVICE USER [None]
  - CARDIAC FAILURE CONGESTIVE [None]
  - PERIPHERAL VASCULAR DISORDER [None]
  - MYOCARDIAL ISCHAEMIA [None]
  - SICK SINUS SYNDROME [None]
